FAERS Safety Report 22931464 (Version 2)
Quarter: 2024Q1

REPORT INFORMATION
  Report Type: Spontaneous
  Country: FR (occurrence: FR)
  Receive Date: 20230911
  Receipt Date: 20240213
  Transmission Date: 20240410
  Serious: Yes (Hospitalization, Other)
  Sender: FDA-Public Use
  Company Number: FR-AstraZeneca-2023-8397

PATIENT
  Age: 771 Month
  Sex: Female

DRUGS (84)
  1. PEMBROLIZUMAB [Suspect]
     Active Substance: PEMBROLIZUMAB
     Route: 042
  2. TRASTUZUMAB DERUXTECAN [Suspect]
     Active Substance: TRASTUZUMAB DERUXTECAN
     Route: 042
  3. OSIMERTINIB [Suspect]
     Active Substance: OSIMERTINIB
     Indication: Non-small cell lung cancer
     Dosage: 500 MILLIGRAM/SQ. METER, Q3W
     Route: 048
     Dates: start: 20220823, end: 20220912
  4. OSIMERTINIB [Suspect]
     Active Substance: OSIMERTINIB
     Dosage: 500 MILLIGRAM/SQ. METER, Q3W
     Route: 048
     Dates: start: 20211102, end: 20211122
  5. OSIMERTINIB [Suspect]
     Active Substance: OSIMERTINIB
     Dosage: 500 MILLIGRAM/SQ. METER, Q3W
     Route: 048
     Dates: start: 20211012, end: 20211101
  6. OSIMERTINIB [Suspect]
     Active Substance: OSIMERTINIB
     Dosage: 500 MILLIGRAM/SQ. METER, Q3W
     Route: 048
     Dates: start: 20230117, end: 20230206
  7. OSIMERTINIB [Suspect]
     Active Substance: OSIMERTINIB
     Dosage: 500 MILLIGRAM/SQ. METER, Q3W
     Route: 048
     Dates: start: 20210831, end: 20210920
  8. OSIMERTINIB [Suspect]
     Active Substance: OSIMERTINIB
     Dosage: 500 MILLIGRAM/SQ. METER, Q3W
     Route: 048
     Dates: start: 20221004, end: 20221024
  9. OSIMERTINIB [Suspect]
     Active Substance: OSIMERTINIB
     Dosage: 500 MILLIGRAM/SQ. METER, Q3W
     Route: 048
     Dates: start: 20210720, end: 20210809
  10. OSIMERTINIB [Suspect]
     Active Substance: OSIMERTINIB
     Dosage: 500 MILLIGRAM/SQ. METER, Q3W
     Route: 048
     Dates: start: 20220419, end: 20220509
  11. OSIMERTINIB [Suspect]
     Active Substance: OSIMERTINIB
     Dosage: 500 MILLIGRAM/SQ. METER, Q3W
     Route: 048
     Dates: start: 20210810, end: 20210830
  12. OSIMERTINIB [Suspect]
     Active Substance: OSIMERTINIB
     Dosage: 500 MILLIGRAM/SQ. METER, Q3W
     Route: 048
     Dates: start: 20221115, end: 20221206
  13. OSIMERTINIB [Suspect]
     Active Substance: OSIMERTINIB
     Dosage: 500 MILLIGRAM/SQ. METER, Q3W
     Route: 048
     Dates: start: 20211214, end: 20220103
  14. OSIMERTINIB [Suspect]
     Active Substance: OSIMERTINIB
     Dosage: 500 MILLIGRAM/SQ. METER, Q3W
     Route: 048
     Dates: start: 20220531, end: 20220620
  15. OSIMERTINIB [Suspect]
     Active Substance: OSIMERTINIB
     Dosage: 500 MILLIGRAM/SQ. METER, Q3W
     Route: 048
     Dates: start: 20230207, end: 20230227
  16. OSIMERTINIB [Suspect]
     Active Substance: OSIMERTINIB
     Dosage: 500 MILLIGRAM/SQ. METER, Q3W
     Route: 048
     Dates: start: 20220510, end: 20220530
  17. OSIMERTINIB [Suspect]
     Active Substance: OSIMERTINIB
     Dosage: 500 MILLIGRAM/SQ. METER, Q3W
     Route: 048
     Dates: start: 20211123, end: 20211213
  18. OSIMERTINIB [Suspect]
     Active Substance: OSIMERTINIB
     Dosage: 500 MILLIGRAM/SQ. METER, Q3W
     Route: 048
     Dates: start: 20220104, end: 20220124
  19. OSIMERTINIB [Suspect]
     Active Substance: OSIMERTINIB
     Dosage: 500 MILLIGRAM/SQ. METER, Q3W
     Route: 048
     Dates: start: 20220712, end: 20220801
  20. OSIMERTINIB [Suspect]
     Active Substance: OSIMERTINIB
     Dosage: 500 MILLIGRAM/SQ. METER, Q3W
     Route: 048
     Dates: start: 20220913, end: 20221003
  21. OSIMERTINIB [Suspect]
     Active Substance: OSIMERTINIB
     Dosage: 500 MILLIGRAM/SQ. METER, Q3W
     Route: 048
     Dates: start: 20221207, end: 20221227
  22. OSIMERTINIB [Suspect]
     Active Substance: OSIMERTINIB
     Dosage: 500 MILLIGRAM/SQ. METER, Q3W
     Route: 048
     Dates: start: 20220329, end: 20220418
  23. OSIMERTINIB [Suspect]
     Active Substance: OSIMERTINIB
     Dosage: 500 MILLIGRAM/SQ. METER, Q3W
     Route: 048
     Dates: start: 20210629, end: 20210719
  24. OSIMERTINIB [Suspect]
     Active Substance: OSIMERTINIB
     Dosage: 500 MILLIGRAM/SQ. METER, Q3W
     Route: 048
     Dates: start: 20220125, end: 20220214
  25. OSIMERTINIB [Suspect]
     Active Substance: OSIMERTINIB
     Dosage: 500 MILLIGRAM/SQ. METER, Q3W
     Route: 048
     Dates: start: 20210921, end: 20211011
  26. OSIMERTINIB [Suspect]
     Active Substance: OSIMERTINIB
     Dosage: 500 MILLIGRAM/SQ. METER, Q3W
     Route: 048
     Dates: start: 20230228, end: 20230321
  27. OSIMERTINIB [Suspect]
     Active Substance: OSIMERTINIB
     Dosage: 500 MILLIGRAM/SQ. METER, Q3W
     Route: 048
     Dates: start: 20221025, end: 20221114
  28. OSIMERTINIB [Suspect]
     Active Substance: OSIMERTINIB
     Dosage: 500 MILLIGRAM/SQ. METER, Q3W
     Route: 048
     Dates: start: 20210608, end: 20210628
  29. OSIMERTINIB [Suspect]
     Active Substance: OSIMERTINIB
     Dosage: 500 MILLIGRAM/SQ. METER, Q3W
     Route: 048
     Dates: start: 20210520, end: 20210607
  30. OSIMERTINIB [Suspect]
     Active Substance: OSIMERTINIB
     Dosage: 500 MILLIGRAM/SQ. METER, Q3W
     Route: 048
     Dates: start: 20220802, end: 20220822
  31. OSIMERTINIB [Suspect]
     Active Substance: OSIMERTINIB
     Dosage: 500 MILLIGRAM/SQ. METER, Q3W
     Route: 048
     Dates: start: 20220215, end: 20220307
  32. OSIMERTINIB [Suspect]
     Active Substance: OSIMERTINIB
     Dosage: 500 MILLIGRAM/SQ. METER, Q3W
     Route: 048
     Dates: start: 20220308, end: 20220328
  33. OSIMERTINIB [Suspect]
     Active Substance: OSIMERTINIB
     Dosage: 500 MILLIGRAM/SQ. METER, Q3W
     Route: 048
     Dates: start: 20220621, end: 20220711
  34. OSIMERTINIB [Suspect]
     Active Substance: OSIMERTINIB
     Dosage: 500 MILLIGRAM/SQ. METER, Q3W
     Route: 048
     Dates: start: 20221228, end: 20230116
  35. ALGELDRATE\SODIUM ALGINATE [Concomitant]
     Active Substance: ALGELDRATE\SODIUM ALGINATE
     Indication: Gastrooesophageal reflux disease
     Dosage: UNKNOWN  AS REQUIRED
     Route: 048
     Dates: start: 20210526, end: 202106
  36. FERINJECT [Concomitant]
     Active Substance: FERRIC CARBOXYMALTOSE
     Indication: Anaemia
     Dosage: ONCE/SINGLE ADMINISTRATION
     Route: 042
     Dates: start: 202108, end: 202108
  37. CHOLECALCIFEROL [Concomitant]
     Active Substance: CHOLECALCIFEROL
     Indication: Vitamin D deficiency
     Route: 048
     Dates: start: 20220510
  38. PRIMPERAN [Concomitant]
     Active Substance: METOCLOPRAMIDE HYDROCHLORIDE
     Indication: Premedication
     Route: 042
     Dates: start: 20210526, end: 202106
  39. AERIUS (DESLORATADINE) [Concomitant]
     Active Substance: DESLORATADINE
     Indication: Skin toxicity
     Route: 048
     Dates: start: 20211214
  40. ACETAMINOPHEN [Concomitant]
     Active Substance: ACETAMINOPHEN
     Indication: Tumour pain
     Route: 048
     Dates: start: 202103, end: 202106
  41. MAGNESIUM [Concomitant]
     Active Substance: MAGNESIUM
     Indication: Hypomagnesaemia
     Dosage: UNKNOWN TWO TIMES A DAY, BID
     Route: 048
     Dates: start: 20210628, end: 202107
  42. METOPIMAZINE [Concomitant]
     Active Substance: METOPIMAZINE
     Indication: Nausea
     Route: 048
     Dates: start: 20210520, end: 202205
  43. PHLOROGLUCINOL\1,3,5-TRIMETHOXYBENZENE [Concomitant]
     Active Substance: PHLOROGLUCINOL\1,3,5-TRIMETHOXYBENZENE
     Indication: Abdominal pain
     Dosage: 80 MILLIGRAM, Q12H
     Route: 048
     Dates: start: 20210909, end: 202205
  44. CARBOPLATIN [Concomitant]
     Active Substance: CARBOPLATIN
     Indication: Non-small cell lung cancer
     Dosage: 5 AUC EVERY THREE WEEKS
     Route: 042
     Dates: start: 20210629, end: 20210629
  45. CARBOPLATIN [Concomitant]
     Active Substance: CARBOPLATIN
     Dosage: 5 AUC EVERY THREE WEEKS
     Route: 042
     Dates: start: 20210520, end: 20210520
  46. CARBOPLATIN [Concomitant]
     Active Substance: CARBOPLATIN
     Dosage: 5 AUC EVERY THREE WEEKS
     Route: 042
     Dates: start: 20210720, end: 20210720
  47. CARBOPLATIN [Concomitant]
     Active Substance: CARBOPLATIN
     Dosage: 5 AUC EVERY THREE WEEKS
     Route: 042
     Dates: start: 20210608, end: 20210608
  48. MORPHINE SULFATE [Concomitant]
     Active Substance: MORPHINE SULFATE
     Indication: Analgesic therapy
     Route: 048
     Dates: start: 20230411
  49. PEMETREXED [Concomitant]
     Active Substance: PEMETREXED
     Indication: Non-small cell lung cancer
     Route: 042
     Dates: start: 20220125, end: 20220125
  50. PEMETREXED [Concomitant]
     Active Substance: PEMETREXED
     Route: 042
     Dates: start: 20220419, end: 20220419
  51. PEMETREXED [Concomitant]
     Active Substance: PEMETREXED
     Route: 042
     Dates: start: 20210520, end: 20210520
  52. PEMETREXED [Concomitant]
     Active Substance: PEMETREXED
     Route: 042
     Dates: start: 20220823, end: 20220823
  53. PEMETREXED [Concomitant]
     Active Substance: PEMETREXED
     Route: 042
     Dates: start: 20210810, end: 20210810
  54. PEMETREXED [Concomitant]
     Active Substance: PEMETREXED
     Route: 042
     Dates: start: 20220329, end: 20220329
  55. PEMETREXED [Concomitant]
     Active Substance: PEMETREXED
     Route: 042
     Dates: start: 20211012, end: 20211012
  56. PEMETREXED [Concomitant]
     Active Substance: PEMETREXED
     Route: 042
     Dates: start: 20220215, end: 20220215
  57. PEMETREXED [Concomitant]
     Active Substance: PEMETREXED
     Route: 042
     Dates: start: 20221115, end: 20221115
  58. PEMETREXED [Concomitant]
     Active Substance: PEMETREXED
     Route: 042
     Dates: start: 20211102, end: 20211102
  59. PEMETREXED [Concomitant]
     Active Substance: PEMETREXED
     Route: 042
     Dates: start: 20210629, end: 20210629
  60. PEMETREXED [Concomitant]
     Active Substance: PEMETREXED
     Route: 042
     Dates: start: 20221025, end: 20221025
  61. PEMETREXED [Concomitant]
     Active Substance: PEMETREXED
     Route: 042
     Dates: start: 20210720, end: 20210720
  62. PEMETREXED [Concomitant]
     Active Substance: PEMETREXED
     Route: 042
     Dates: start: 20220913, end: 20220913
  63. PEMETREXED [Concomitant]
     Active Substance: PEMETREXED
     Route: 042
     Dates: start: 20211123, end: 20211123
  64. PEMETREXED [Concomitant]
     Active Substance: PEMETREXED
     Route: 042
     Dates: start: 20221228, end: 20221228
  65. PEMETREXED [Concomitant]
     Active Substance: PEMETREXED
     Route: 042
     Dates: start: 20220308, end: 20220308
  66. PEMETREXED [Concomitant]
     Active Substance: PEMETREXED
     Route: 042
     Dates: start: 20210921, end: 20210921
  67. PEMETREXED [Concomitant]
     Active Substance: PEMETREXED
     Route: 042
     Dates: start: 20210831, end: 20210831
  68. PEMETREXED [Concomitant]
     Active Substance: PEMETREXED
     Route: 042
     Dates: start: 20220712, end: 20220712
  69. PEMETREXED [Concomitant]
     Active Substance: PEMETREXED
     Route: 042
     Dates: start: 20211214, end: 20211214
  70. PEMETREXED [Concomitant]
     Active Substance: PEMETREXED
     Route: 042
     Dates: start: 20220510, end: 20220510
  71. PEMETREXED [Concomitant]
     Active Substance: PEMETREXED
     Route: 042
     Dates: start: 20220104, end: 20220104
  72. PEMETREXED [Concomitant]
     Active Substance: PEMETREXED
     Route: 042
     Dates: start: 20221004, end: 20221004
  73. PEMETREXED [Concomitant]
     Active Substance: PEMETREXED
     Route: 042
     Dates: start: 20220802, end: 20220802
  74. PEMETREXED [Concomitant]
     Active Substance: PEMETREXED
     Route: 042
     Dates: start: 20221207, end: 20221207
  75. PEMETREXED [Concomitant]
     Active Substance: PEMETREXED
     Route: 042
     Dates: start: 20230117, end: 20230117
  76. PEMETREXED [Concomitant]
     Active Substance: PEMETREXED
     Route: 042
     Dates: start: 20220621, end: 20220621
  77. PEMETREXED [Concomitant]
     Active Substance: PEMETREXED
     Route: 042
     Dates: start: 20210608, end: 20210608
  78. PEMETREXED [Concomitant]
     Active Substance: PEMETREXED
     Route: 042
     Dates: start: 20220531, end: 20220531
  79. LOPERAMIDE [Concomitant]
     Active Substance: LOPERAMIDE
     Indication: Diarrhoea
     Route: 048
     Dates: start: 20210520, end: 202205
  80. DEXERYL [CHLORPHENAMINE MALEATE;DEXTROMETHORPHAN HYDROBROMIDE;GUAIFENE [Concomitant]
     Indication: Skin disorder
     Dosage: UNKNOWN  AS REQUIRED
     Route: 003
     Dates: start: 20210520, end: 202205
  81. XANAX [Concomitant]
     Active Substance: ALPRAZOLAM
     Indication: Depression
     Route: 048
     Dates: start: 20210511, end: 202106
  82. ALPRAZOLAM [Concomitant]
     Active Substance: ALPRAZOLAM
     Indication: Depression
     Dosage: 0.25 MILLIGRAM
     Route: 048
     Dates: start: 202303
  83. ALPRAZOLAM [Concomitant]
     Active Substance: ALPRAZOLAM
     Dosage: 0.25 MILLIGRAM
     Route: 048
     Dates: start: 20210511, end: 202106
  84. PANTOPRAZOLE [Concomitant]
     Active Substance: PANTOPRAZOLE
     Indication: Gastrooesophageal reflux disease
     Route: 048
     Dates: start: 20210921

REACTIONS (1)
  - Ischaemic stroke [Recovered/Resolved]

NARRATIVE: CASE EVENT DATE: 20230519
